FAERS Safety Report 8543495-4 (Version None)
Quarter: 2012Q3

REPORT INFORMATION
  Report Type: 
  Country: None (occurrence: None)
  Receive Date: 20120727
  Receipt Date: 20120723
  Transmission Date: 20120928
  Serious: Yes (Hospitalization, Other)
  Sender: FDA-Public Use
  Company Number: PHHY2010US88064

PATIENT
  Sex: Female

DRUGS (3)
  1. GLEEVEC [Suspect]
     Indication: NEOPLASM
     Dosage: 400 MG, DAILY
     Route: 048
     Dates: start: 20101223
  2. GLEEVEC [Suspect]
     Dosage: 400 MG QD
     Route: 048
     Dates: start: 20120417
  3. GLEEVEC [Suspect]
     Dosage: 400 MG, QD
     Route: 048

REACTIONS (12)
  - DYSPEPSIA [None]
  - DESMOID TUMOUR [None]
  - ABDOMINAL ADHESIONS [None]
  - CONSTIPATION [None]
  - NEOPLASM MALIGNANT [None]
  - FLATULENCE [None]
  - NEOPLASM PROGRESSION [None]
  - NAUSEA [None]
  - GENE MUTATION IDENTIFICATION TEST POSITIVE [None]
  - FLUID RETENTION [None]
  - PERIORBITAL OEDEMA [None]
  - DIARRHOEA [None]
